FAERS Safety Report 15470324 (Version 1)
Quarter: 2018Q4

REPORT INFORMATION
  Report Type: Spontaneous
  Country: NG (occurrence: NG)
  Receive Date: 20181005
  Receipt Date: 20181005
  Transmission Date: 20190205
  Serious: Yes (Hospitalization)
  Sender: FDA-Public Use
  Company Number: NG-IMPAX LABORATORIES, INC-2018-IPXL-03200

PATIENT
  Age: 26 Year
  Sex: Male

DRUGS (2)
  1. CHLOROQUINE PHOSPHATE. [Suspect]
     Active Substance: CHLOROQUINE PHOSPHATE
     Indication: PYREXIA
     Dosage: 2 TABLETS, UNK
     Route: 065
  2. ASPIRIN. [Suspect]
     Active Substance: ASPIRIN
     Indication: PYREXIA
     Dosage: 2 TABLETS, UNK
     Route: 065

REACTIONS (4)
  - Torticollis [Recovering/Resolving]
  - Paraesthesia [Recovering/Resolving]
  - Muscle contractions involuntary [Recovering/Resolving]
  - Dyskinesia [Recovering/Resolving]
